FAERS Safety Report 5061960-1 (Version None)
Quarter: 2006Q3

REPORT INFORMATION
  Report Type: 
  Country: None (occurrence: None)
  Receive Date: 20060726
  Receipt Date: 20060531
  Transmission Date: 20061208
  Serious: Yes (Death)
  Sender: FDA-Public Use
  Company Number: DEWYE671731MAY06

PATIENT
  Sex: Female
  Weight: 115 kg

DRUGS (3)
  1. ENBREL [Suspect]
     Indication: PSORIASIS
     Dosage: 50 MG
     Route: 030
     Dates: start: 20060526
  2. ACETAMINOPHEN [Suspect]
     Indication: DRUG USE FOR UNKNOWN INDICATION
     Dosage: UNKNOWN
     Route: 065
  3. UNSPECIFIED CONTRACEPTIVE [Concomitant]
     Dosage: UNKNOWN
     Route: 065

REACTIONS (3)
  - DRUG ABUSER [None]
  - HEPATIC FAILURE [None]
  - SUDDEN DEATH [None]
